FAERS Safety Report 7848659-0 (Version None)
Quarter: 2011Q4

REPORT INFORMATION
  Report Type: 
  Country: None (occurrence: None)
  Receive Date: 20111026
  Receipt Date: 20111017
  Transmission Date: 20120403
  Serious: Yes (Hospitalization, Other)
  Sender: FDA-Public Use
  Company Number: US-BIOGENIDEC-2011BI001630

PATIENT
  Sex: Female

DRUGS (2)
  1. AVONEX [Suspect]
     Indication: MULTIPLE SCLEROSIS
     Route: 030
     Dates: start: 20090914, end: 20101201
  2. AVONEX [Suspect]
     Route: 030
     Dates: start: 19960619, end: 20010620

REACTIONS (3)
  - UPPER RESPIRATORY TRACT INFECTION [None]
  - SMALL CELL CARCINOMA [None]
  - METASTATIC NEOPLASM [None]
